FAERS Safety Report 7482364-8 (Version None)
Quarter: 2011Q2

REPORT INFORMATION
  Report Type: 
  Country: None (occurrence: None)
  Receive Date: 20110516
  Receipt Date: 20110506
  Transmission Date: 20111010
  Serious: No
  Sender: FDA-Public Use
  Company Number: US-PFIZER INC-2011095362

PATIENT
  Sex: Female

DRUGS (3)
  1. SERTRALINE HYDROCHLORIDE [Suspect]
     Indication: DEPRESSION
     Dosage: 100 MG, UNK
     Route: 048
     Dates: start: 20100101
  2. IBUPROFEN [Concomitant]
     Indication: ARTHRITIS
     Dosage: UNK
  3. SYMBICORT [Concomitant]
     Indication: DYSPNOEA
     Dosage: UNK

REACTIONS (1)
  - DYSGEUSIA [None]
